FAERS Safety Report 5864213-4 (Version None)
Quarter: 2008Q3

REPORT INFORMATION
  Report Type: 
  Country: None (occurrence: None)
  Receive Date: 20080829
  Receipt Date: 20080820
  Transmission Date: 20090109
  Serious: Yes (Death)
  Sender: FDA-Public Use
  Company Number: JP-ROCHE-577906

PATIENT
  Sex: Male
  Weight: 25 kg

DRUGS (7)
  1. KYTRIL [Suspect]
     Indication: PROPHYLAXIS OF NAUSEA AND VOMITING
     Dosage: ROUTE: INTRAVENOUS (NOT OTHERWISE SPECIFIED)
     Route: 042
     Dates: start: 20080721, end: 20080721
  2. ONCOVIN [Suspect]
     Indication: NON-HODGKIN'S LYMPHOMA
     Dosage: ROUTE: INTRAVENOUS (NOT OTHERWISE SPECIFIED)
     Route: 042
     Dates: start: 20080721, end: 20080721
  3. ENDOXAN [Suspect]
     Indication: NON-HODGKIN'S LYMPHOMA
     Route: 041
     Dates: start: 20080721, end: 20080721
  4. DAUNOMYCIN [Suspect]
     Indication: NON-HODGKIN'S LYMPHOMA
     Route: 041
     Dates: start: 20080721, end: 20080721
  5. PREDONINE [Concomitant]
     Route: 048
     Dates: start: 20080714, end: 20080716
  6. PREDONINE [Concomitant]
     Route: 048
     Dates: start: 20080717, end: 20080721
  7. PREDONINE [Concomitant]
     Dosage: ROUTE REPORTED: INTRAVENOUS (NOT OTHERWISE SPECIFIED).
     Route: 042
     Dates: start: 20080721, end: 20080721

REACTIONS (1)
  - ANAPHYLACTIC SHOCK [None]
